FAERS Safety Report 8904790 (Version 1)
Quarter: 2012Q4

REPORT INFORMATION
  Report Type: 
  Country: US (occurrence: US)
  Receive Date: 20121113
  Receipt Date: 20121113
  Transmission Date: 20130627
  Serious: No
  Sender: FDA-Public Use
  Company Number: US-009507513-1210USA013095

PATIENT
  Sex: Female

DRUGS (3)
  1. PEG-INTRON [Suspect]
     Dosage: 150 Microgram, UNK
     Dates: start: 201204, end: 201210
  2. RIBASPHERE [Concomitant]
  3. TELAPREVIR [Concomitant]

REACTIONS (2)
  - Nausea [Unknown]
  - Vomiting [Unknown]
